FAERS Safety Report 7630557-9 (Version None)
Quarter: 2011Q3

REPORT INFORMATION
  Report Type: 
  Country: None (occurrence: None)
  Receive Date: 20110722
  Receipt Date: 20080814
  Transmission Date: 20111222
  Serious: Yes (Other)
  Sender: FDA-Public Use
  Company Number: US-BAYER-200831552NA

PATIENT
  Age: 38 Year
  Sex: Female
  Weight: 76.19 kg

DRUGS (37)
  1. MAGNEVIST [Suspect]
     Indication: NUCLEAR MAGNETIC RESONANCE IMAGING
  2. OMNISCAN [Suspect]
     Indication: CATHETER PLACEMENT
     Dates: start: 20030828, end: 20030828
  3. FOSRENOL [Concomitant]
  4. KEPPRA [Concomitant]
  5. PROGRAF [Concomitant]
     Indication: PROPHYLAXIS AGAINST TRANSPLANT REJECTION
     Dates: start: 20060228, end: 20060510
  6. PLAVIX [Concomitant]
  7. SENSIPAR [Concomitant]
  8. ADVAIR DISKUS 100/50 [Concomitant]
  9. VICODIN [Concomitant]
     Indication: PAIN
  10. CELLCEPT [Concomitant]
  11. AMLODIPINE [Concomitant]
  12. CATAPRES [Concomitant]
  13. REQUIP [Concomitant]
  14. SPIRIVA [Concomitant]
  15. MAGNEVIST [Suspect]
     Indication: VENOGRAM
  16. PREDNISONE [Concomitant]
     Indication: PROPHYLAXIS AGAINST TRANSPLANT REJECTION
     Dates: start: 20060228, end: 20060928
  17. RENA-VITE [Concomitant]
     Indication: MEDICAL DIET
  18. WARFARIN SODIUM [Concomitant]
  19. LISINOPRIL [Concomitant]
  20. NIFEDIPINE [Concomitant]
  21. FERROUS SULFATE TAB [Concomitant]
     Indication: IRON DEFICIENCY
     Dates: start: 20080101
  22. PROGRAF [Concomitant]
  23. LEXAPRO [Concomitant]
  24. PULMICORT [Concomitant]
  25. MAGNEVIST [Suspect]
     Indication: CATHETER PLACEMENT
     Dates: start: 20060425, end: 20060425
  26. OMNISCAN [Suspect]
     Indication: NUCLEAR MAGNETIC RESONANCE IMAGING
  27. LABETALOL HCL [Concomitant]
     Indication: HYPERTENSION
     Dates: start: 20060426
  28. EPOGEN [Concomitant]
  29. MOTRIN [Concomitant]
  30. OMNISCAN [Suspect]
     Indication: VENOGRAM
  31. FUROSEMIDE [Concomitant]
  32. OSCAL [Concomitant]
  33. PROCRIT [Concomitant]
  34. FLOMAX [Concomitant]
  35. RHINOCORT [Concomitant]
  36. TRAZODONE HCL [Concomitant]
  37. XOPENEX [Concomitant]

REACTIONS (12)
  - MOBILITY DECREASED [None]
  - NEPHROGENIC SYSTEMIC FIBROSIS [None]
  - PAIN [None]
  - SKIN OEDEMA [None]
  - FIBROSIS [None]
  - EMOTIONAL DISTRESS [None]
  - SKIN TIGHTNESS [None]
  - GENERAL PHYSICAL HEALTH DETERIORATION [None]
  - UNEVALUABLE EVENT [None]
  - ABASIA [None]
  - ANXIETY [None]
  - INJURY [None]
